FAERS Safety Report 13644508 (Version 1)
Quarter: 2017Q2

REPORT INFORMATION
  Report Type: Spontaneous
  Country: US (occurrence: US)
  Receive Date: 20170612
  Receipt Date: 20170612
  Transmission Date: 20170830
  Serious: No
  Sender: FDA-Public Use
  Company Number: US-ROCHE-1003788

PATIENT
  Age: 66 Year
  Sex: Female

DRUGS (4)
  1. XELODA [Suspect]
     Active Substance: CAPECITABINE
     Route: 065
     Dates: end: 20110925
  2. XELODA [Suspect]
     Active Substance: CAPECITABINE
     Route: 065
     Dates: start: 20111002, end: 20111003
  3. XELODA [Suspect]
     Active Substance: CAPECITABINE
     Route: 065
  4. XELODA [Suspect]
     Active Substance: CAPECITABINE
     Indication: BREAST CANCER METASTATIC
     Route: 048
     Dates: start: 20110812

REACTIONS (1)
  - Palmar-plantar erythrodysaesthesia syndrome [Recovering/Resolving]

NARRATIVE: CASE EVENT DATE: 20110919
